FAERS Safety Report 5278799-4 (Version None)
Quarter: 2007Q1

REPORT INFORMATION
  Report Type: 
  Country: None (occurrence: None)
  Receive Date: 20061208
  Receipt Date: 20060427
  Transmission Date: 20070707
  Serious: Yes (Hospitalization, Other)
  Sender: FDA-Public Use
  Company Number: USA-2005-0021464

PATIENT
  Sex: Female

DRUGS (2)
  1. OXYCONTIN [Suspect]
  2. PROVIGIL [Concomitant]

REACTIONS (29)
  - ABDOMINAL PAIN UPPER [None]
  - ANAEMIA [None]
  - ANOREXIA [None]
  - ANXIETY [None]
  - BACK PAIN [None]
  - CHEST PAIN [None]
  - CHRONIC OBSTRUCTIVE PULMONARY DISEASE [None]
  - CONSTIPATION [None]
  - CORONARY ARTERY DISEASE [None]
  - DELUSIONAL DISORDER, UNSPECIFIED TYPE [None]
  - DEPRESSION [None]
  - DIABETES MELLITUS NON-INSULIN-DEPENDENT [None]
  - DRUG DEPENDENCE [None]
  - DRUG WITHDRAWAL SYNDROME [None]
  - DRY SKIN [None]
  - DYSPEPSIA [None]
  - DYSPHONIA [None]
  - DYSPNOEA [None]
  - HEPATITIS C [None]
  - HYPERLIPIDAEMIA [None]
  - HYPOXIA [None]
  - NOCTURIA [None]
  - OBSESSIVE-COMPULSIVE DISORDER [None]
  - OVERWEIGHT [None]
  - PAIN [None]
  - PARANOIA [None]
  - PEPTIC ULCER [None]
  - SCIATICA [None]
  - SOMNOLENCE [None]
